FAERS Safety Report 4286962-4 (Version None)
Quarter: 2004Q1

REPORT INFORMATION
  Report Type: 
  Country: None (occurrence: None)
  Receive Date: 20040206
  Receipt Date: 20040202
  Transmission Date: 20041129
  Serious: Yes (Death, Hospitalization)
  Sender: FDA-Public Use
  Company Number: WAES 0402USA00261

PATIENT
  Age: 26 Year
  Sex: Female

DRUGS (9)
  1. CEFOTIAM HYDROCHLORIDE [Concomitant]
     Indication: PYREXIA
  2. CEFTAZIDIME [Concomitant]
     Indication: SERRATIA INFECTION
  3. CEFTAZIDIME [Concomitant]
  4. CEFTRIAXONE SODIUM [Concomitant]
     Route: 042
  5. PRIMAXIN [Suspect]
     Indication: SERRATIA INFECTION
     Route: 042
  6. PRIMAXIN [Suspect]
     Route: 042
  7. PRIMAXIN [Suspect]
     Indication: SEPSIS
     Route: 042
  8. PRIMAXIN [Suspect]
     Route: 042
  9. HEPARIN [Concomitant]
     Route: 041

REACTIONS (10)
  - ABORTION SPONTANEOUS [None]
  - AMNIORRHEXIS [None]
  - ANTEPARTUM HAEMORRHAGE [None]
  - CHORIOAMNIONITIS [None]
  - COMPLICATIONS OF MATERNAL EXPOSURE TO THERAPEUTIC DRUGS [None]
  - DRUG EXPOSURE DURING PREGNANCY [None]
  - DRUG INEFFECTIVE [None]
  - PATHOGEN RESISTANCE [None]
  - SEPSIS [None]
  - SERRATIA INFECTION [None]
